FAERS Safety Report 9742274 (Version 2)
Quarter: 2014Q1

REPORT INFORMATION
  Report Type: Spontaneous
  Country: US (occurrence: US)
  Receive Date: 20131210
  Receipt Date: 20140316
  Transmission Date: 20141002
  Serious: Yes (Hospitalization, Other)
  Sender: FDA-Public Use
  Company Number: US-BAYER-2013-150462

PATIENT
  Age: 33 Year
  Sex: Female
  Weight: 66.21 kg

DRUGS (1)
  1. SAFYRAL [Suspect]
     Dosage: UNK
     Dates: start: 20120328, end: 20120413

REACTIONS (7)
  - Cerebral venous thrombosis [None]
  - Jugular vein thrombosis [None]
  - Cerebrovascular accident [None]
  - Convulsion [None]
  - Injury [None]
  - Head deformity [None]
  - Scar [None]
